FAERS Safety Report 9442024 (Version 1)
Quarter: 2013Q3

REPORT INFORMATION
  Report Type: Spontaneous
  Country: GB (occurrence: GB)
  Receive Date: 20130806
  Receipt Date: 20130806
  Transmission Date: 20140515
  Serious: Yes (Other)
  Sender: FDA-Public Use
  Company Number: GB-ROXANE LABORATORIES, INC.-2013-RO-01274RO

PATIENT
  Age: 62 Year
  Sex: Female

DRUGS (5)
  1. CLOPIDOGREL [Suspect]
  2. INSULIN [Concomitant]
  3. METFORMIN [Concomitant]
  4. SIMVASTATIN [Concomitant]
  5. RAMIPRIL [Concomitant]

REACTIONS (2)
  - Haemorrhage [Unknown]
  - Sweat gland tumour [Unknown]
